FAERS Safety Report 20608204 (Version 2)
Quarter: 2022Q1

REPORT INFORMATION
  Report Type: Spontaneous
  Country: RU (occurrence: RU)
  Receive Date: 20220317
  Receipt Date: 20220331
  Transmission Date: 20220423
  Serious: Yes (Other)
  Sender: FDA-Public Use
  Company Number: RU-TEVA-2022-RU-2016724

PATIENT
  Age: 58 Year
  Sex: Female

DRUGS (14)
  1. ETOPOSIDE [Suspect]
     Active Substance: ETOPOSIDE
     Indication: Metastatic choriocarcinoma
     Dosage: BEP THERAPY
     Route: 065
  2. ETOPOSIDE [Suspect]
     Active Substance: ETOPOSIDE
     Indication: Ovarian cancer
     Dosage: 5 CYCLES OF EMA-CO, THEN AGAIN 4 CYCLES
     Route: 042
  3. CISPLATIN [Suspect]
     Active Substance: CISPLATIN
     Indication: Metastatic choriocarcinoma
     Dosage: BEP THERAPY
     Route: 065
  4. CISPLATIN [Suspect]
     Active Substance: CISPLATIN
     Indication: Ovarian cancer
  5. METHOTREXATE [Suspect]
     Active Substance: METHOTREXATE
     Indication: Metastatic choriocarcinoma
     Dosage: 5 CYCLES OF EMA-CO, THEN ADDITIONAL 4 CYCLES
     Route: 042
  6. METHOTREXATE [Suspect]
     Active Substance: METHOTREXATE
     Indication: Ovarian cancer
  7. VINCRISTINE [Suspect]
     Active Substance: VINCRISTINE
     Indication: Metastatic choriocarcinoma
     Dosage: 5 CYCLES OF EMA-CO, THEN ADDITIONAL 4 CYCLES
     Route: 042
  8. VINCRISTINE [Suspect]
     Active Substance: VINCRISTINE
     Indication: Ovarian cancer
  9. ACTINOMYCIN D [Suspect]
     Active Substance: DACTINOMYCIN
     Indication: Metastatic choriocarcinoma
     Dosage: 5 CYCLES OF EMA-CO, THEN ADDITIONAL 4 CYCLES
     Route: 042
  10. ACTINOMYCIN D [Suspect]
     Active Substance: DACTINOMYCIN
     Indication: Ovarian cancer
  11. CYCLOPHOSPHAMIDE [Suspect]
     Active Substance: CYCLOPHOSPHAMIDE
     Indication: Metastatic choriocarcinoma
     Dosage: 5 CYCLES OF EMA-CO, THEN ADDITIONAL 4 CYCLES
     Route: 042
  12. CYCLOPHOSPHAMIDE [Suspect]
     Active Substance: CYCLOPHOSPHAMIDE
     Indication: Ovarian cancer
  13. BLEOMYCIN [Suspect]
     Active Substance: BLEOMYCIN SULFATE
     Indication: Metastatic choriocarcinoma
     Dosage: BEP THERAPY
     Route: 065
  14. BLEOMYCIN [Suspect]
     Active Substance: BLEOMYCIN SULFATE
     Indication: Ovarian cancer

REACTIONS (4)
  - Neutropenia [Unknown]
  - Anaemia [Unknown]
  - Peripheral sensory neuropathy [Unknown]
  - Drug resistance [Unknown]
